FAERS Safety Report 15631560 (Version 1)
Quarter: 2018Q4

REPORT INFORMATION
  Report Type: Spontaneous
  Country: US (occurrence: US)
  Receive Date: 20181118
  Receipt Date: 20181118
  Transmission Date: 20190205
  Serious: Yes (Disabling)
  Sender: FDA-Public Use
  Company Number: None

PATIENT
  Age: 32 Year
  Sex: Female
  Weight: 45 kg

DRUGS (5)
  1. NALTREXONE [Concomitant]
     Active Substance: NALTREXONE
  2. VITAMIN C [Concomitant]
     Active Substance: ASCORBIC ACID
  3. LEVOFLOXACIN. [Suspect]
     Active Substance: LEVOFLOXACIN
     Indication: BRONCHITIS
     Dosage: ?          OTHER ROUTE:IV INFUSION?
     Route: 042
     Dates: start: 20101204
  4. FLEXERIL [Concomitant]
     Active Substance: CYCLOBENZAPRINE HYDROCHLORIDE
  5. KETAMINE [Concomitant]
     Active Substance: KETAMINE

REACTIONS (4)
  - Nerve injury [None]
  - Myofascial pain syndrome [None]
  - Complex regional pain syndrome [None]
  - Psychiatric symptom [None]

NARRATIVE: CASE EVENT DATE: 20101204
